FAERS Safety Report 10493639 (Version 1)
Quarter: 2014Q4

REPORT INFORMATION
  Report Type: Spontaneous
  Country: US (occurrence: US)
  Receive Date: 20141002
  Receipt Date: 20141002
  Transmission Date: 20150528
  Serious: No
  Sender: FDA-Public Use
  Company Number: US-GLAXOSMITHKLINE-A1086550A

PATIENT
  Age: 65 Year
  Sex: Male

DRUGS (19)
  1. ASPIRIN. [Concomitant]
     Active Substance: ASPIRIN
  2. SALMON OIL [Concomitant]
     Active Substance: FISH OIL
  3. VITAMIN D3 [Concomitant]
     Active Substance: CHOLECALCIFEROL
  4. BUPROPION HCL [Concomitant]
     Active Substance: BUPROPION HYDROCHLORIDE
  5. TERAZOSIN [Concomitant]
     Active Substance: TERAZOSIN\TERAZOSIN HYDROCHLORIDE
  6. ALEVE [Concomitant]
     Active Substance: NAPROXEN SODIUM
  7. GARLIC. [Concomitant]
     Active Substance: GARLIC
  8. CALCIUM [Concomitant]
     Active Substance: CALCIUM
  9. ADVAIR HFA [Suspect]
     Active Substance: FLUTICASONE PROPIONATE\SALMETEROL XINAFOATE
     Indication: ASTHMA
     Dosage: 1PUFF TWICE PER DAY
     Route: 055
     Dates: start: 2010, end: 201404
  10. XANAX [Concomitant]
     Active Substance: ALPRAZOLAM
  11. MULTI VITAMIN [Concomitant]
     Active Substance: VITAMINS
  12. FUROSEMIDE. [Concomitant]
     Active Substance: FUROSEMIDE
  13. CINNAMON. [Concomitant]
     Active Substance: CINNAMON
  14. ZINC [Concomitant]
     Active Substance: ZINC\ZINC CHLORIDE
  15. SINGULAIR [Concomitant]
     Active Substance: MONTELUKAST SODIUM
  16. COZAAR [Concomitant]
     Active Substance: LOSARTAN POTASSIUM
  17. VITAMIN C [Concomitant]
     Active Substance: ASCORBIC ACID
  18. LEVOTHYROXINE [Concomitant]
     Active Substance: LEVOTHYROXINE
  19. OMEPRAZOLE. [Concomitant]
     Active Substance: OMEPRAZOLE

REACTIONS (3)
  - Dysphonia [Unknown]
  - Dyspnoea [Recovering/Resolving]
  - Throat irritation [Unknown]

NARRATIVE: CASE EVENT DATE: 2010
